FAERS Safety Report 5552604-0 (Version None)
Quarter: 2007Q4

REPORT INFORMATION
  Report Type: 
  Country: None (occurrence: None)
  Receive Date: 20071212
  Receipt Date: 20070621
  Transmission Date: 20080405
  Serious: No
  Sender: FDA-Public Use
  Company Number: US-AMGEN-KDL230708

PATIENT
  Sex: Female

DRUGS (4)
  1. ENBREL [Suspect]
     Indication: RHEUMATOID ARTHRITIS
     Route: 058
     Dates: start: 20060214
  2. ENBREL [Suspect]
     Indication: PSORIASIS
  3. LEVAQUIN [Suspect]
  4. METHOTREXATE [Concomitant]
     Route: 048
     Dates: start: 20030101

REACTIONS (2)
  - BLOOD BLISTER [None]
  - INJECTION SITE BRUISING [None]
